FAERS Safety Report 23240271 (Version 2)
Quarter: 2023Q4

REPORT INFORMATION
  Report Type: Report from Study
  Country: US (occurrence: None)
  Receive Date: 20231129
  Receipt Date: 20231206
  Transmission Date: 20240110
  Serious: Yes (Hospitalization)
  Sender: FDA-Public Use
  Company Number: US-ROCHE-3462884

PATIENT
  Age: 82 Year
  Sex: Female
  Weight: 42.4 kg

DRUGS (1)
  1. UNSPECIFIED INGREDIENT [Suspect]
     Active Substance: UNSPECIFIED INGREDIENT
     Indication: Product used for unknown indication
     Route: 065

REACTIONS (14)
  - Anaemia [Not Recovered/Not Resolved]
  - Constipation [Recovered/Resolved]
  - Stomatitis [Recovering/Resolving]
  - Mouth haemorrhage [Recovering/Resolving]
  - Chills [Recovered/Resolved]
  - Face oedema [Recovered/Resolved]
  - Candida infection [Recovered/Resolved]
  - Lymphocyte count decreased [Not Recovered/Not Resolved]
  - Dehydration [Recovering/Resolving]
  - Hypoalbuminaemia [Not Recovered/Not Resolved]
  - Trismus [Not Recovered/Not Resolved]
  - Dizziness [Recovered/Resolved]
  - Rash maculo-papular [Recovered/Resolved]
  - Hypotension [Not Recovered/Not Resolved]

NARRATIVE: CASE EVENT DATE: 20231107
